FAERS Safety Report 14315257 (Version 1)
Quarter: 2017Q4

REPORT INFORMATION
  Report Type: Spontaneous
  Country: GB (occurrence: GB)
  Receive Date: 20171221
  Receipt Date: 20171221
  Transmission Date: 20180321
  Serious: Yes (Other)
  Sender: FDA-Public Use
  Company Number: GB-TEVA-2017-GB-833786

PATIENT
  Age: 78 Year
  Sex: Female
  Weight: 74 kg

DRUGS (12)
  1. ADCAL [Concomitant]
     Active Substance: CALCIUM CARBONATE
     Dates: start: 20170725
  2. LANSOPRAZOLE. [Concomitant]
     Active Substance: LANSOPRAZOLE
     Dates: start: 20170725
  3. ATENOLOL. [Concomitant]
     Active Substance: ATENOLOL
     Dosage: EACH MORNING.
     Dates: start: 20170725
  4. DIOCTYL [Concomitant]
     Active Substance: DOCUSATE SODIUM
     Dates: start: 20170117, end: 20171013
  5. ACETYLSALICYLIC ACID [Concomitant]
     Active Substance: ASPIRIN
     Dates: start: 20170725
  6. ZOMORPH [Concomitant]
     Active Substance: MORPHINE SULFATE
     Dates: start: 20170629
  7. ATORVASTATIN [Concomitant]
     Active Substance: ATORVASTATIN
     Dates: start: 20170117, end: 20171013
  8. ESTRADIOL. [Concomitant]
     Active Substance: ESTRADIOL
     Dosage: 1 DAILY FOR 2 WEEKS THEN 1 TWICE WEEKLY FOR 3 M...
     Dates: start: 20170117, end: 20171013
  9. ALENDRONIC ACID [Suspect]
     Active Substance: ALENDRONIC ACID
     Dates: start: 20171101
  10. CHLORPHENAMINE [Concomitant]
     Active Substance: CHLORPHENIRAMINE MALEATE
     Indication: PRURITUS
     Dosage: THREE TIMES A DAY.
     Dates: start: 20170929, end: 20171008
  11. MOVICOL [Concomitant]
     Active Substance: POLYETHYLENE GLYCOL 3350\POTASSIUM CHLORIDE\SODIUM BICARBONATE\SODIUM CHLORIDE
     Dosage: USE AS DIRECTED
     Dates: start: 20170117, end: 20171013
  12. RAMIPRIL. [Concomitant]
     Active Substance: RAMIPRIL
     Dosage: URGENT, REVIEW WITH DOCTOR.
     Dates: start: 20170908

REACTIONS (5)
  - Dyspnoea [Recovering/Resolving]
  - Gastrointestinal disorder [Recovering/Resolving]
  - Alopecia [Recovered/Resolved]
  - Cyanosis [Recovering/Resolving]
  - Oedema [Recovering/Resolving]

NARRATIVE: CASE EVENT DATE: 20171101
